FAERS Safety Report 20253185 (Version 2)
Quarter: 2022Q3

REPORT INFORMATION
  Report Type: Spontaneous
  Country: JP (occurrence: JP)
  Receive Date: 20211229
  Receipt Date: 20220712
  Transmission Date: 20221026
  Serious: Yes (Hospitalization, Other)
  Sender: FDA-Public Use
  Company Number: JP-KYOWAKIRIN-2021AKK021899

PATIENT
  Age: 61 Year
  Sex: Female

DRUGS (39)
  1. PEGFILGRASTIM [Suspect]
     Active Substance: PEGFILGRASTIM
     Indication: Colony stimulating factor therapy
     Dosage: UNK, Q2WK
     Route: 058
     Dates: start: 20190121, end: 20190305
  2. FILGRASTIM [Suspect]
     Active Substance: FILGRASTIM
     Indication: Product used for unknown indication
     Route: 065
  3. DOXORUBICIN HYDROCHLORIDE [Suspect]
     Active Substance: DOXORUBICIN HYDROCHLORIDE
     Indication: Breast cancer
     Dosage: 60 MG, 1X/2 WEEKS
     Route: 041
     Dates: start: 20190121, end: 20190304
  4. CYCLOPHOSPHAMIDE [Concomitant]
     Active Substance: CYCLOPHOSPHAMIDE
     Indication: Breast cancer
     Dosage: 600 MILLIGRAM/SQ. METER, Q2WK
     Route: 041
  5. CYCLOPHOSPHAMIDE [Concomitant]
     Active Substance: CYCLOPHOSPHAMIDE
     Indication: Product used for unknown indication
     Dosage: 600 MG/M2, 1X/2 WEEKS
     Route: 041
     Dates: start: 20190121, end: 20190304
  6. CYCLOPHOSPHAMIDE [Concomitant]
     Active Substance: CYCLOPHOSPHAMIDE
     Dosage: UNK
  7. PACLITAXEL [Suspect]
     Active Substance: PACLITAXEL
     Indication: Product used for unknown indication
     Dosage: UNK
     Route: 065
  8. EMEND [Concomitant]
     Active Substance: APREPITANT
     Indication: Product used for unknown indication
     Dosage: UNK
  9. DECADRON [Concomitant]
     Active Substance: DEXAMETHASONE
     Indication: Product used for unknown indication
     Dosage: UNK UNK, UNK
  10. DECADRON [Concomitant]
     Active Substance: DEXAMETHASONE
     Dosage: UNK  *SINGLE
  11. GASTER [Concomitant]
     Active Substance: FAMOTIDINE
     Indication: Product used for unknown indication
  12. LEVOFLOXACIN [Concomitant]
     Active Substance: LEVOFLOXACIN
     Indication: Pyrexia
  13. Hachiazule [Concomitant]
     Indication: Product used for unknown indication
  14. Hachiazule [Concomitant]
     Dosage: UNK  *SINGLE
  15. Pursennide [Concomitant]
     Indication: Constipation
  16. PRIMPERAN [Concomitant]
     Active Substance: METOCLOPRAMIDE HYDROCHLORIDE
     Indication: Product used for unknown indication
  17. PITAVASTATIN CALCIUM [Concomitant]
     Active Substance: PITAVASTATIN CALCIUM
     Indication: Product used for unknown indication
  18. EPERISONE HYDROCHLORIDE [Concomitant]
     Active Substance: EPERISONE HYDROCHLORIDE
     Indication: Product used for unknown indication
  19. Hypen [Concomitant]
     Indication: Product used for unknown indication
  20. ZOLPIDEM TARTRATE [Concomitant]
     Active Substance: ZOLPIDEM TARTRATE
     Indication: Insomnia
  21. PENCICLOVIR [Concomitant]
     Active Substance: PENCICLOVIR
     Indication: Product used for unknown indication
  22. VIDARABINE [Concomitant]
     Active Substance: VIDARABINE
     Indication: Herpes virus infection
  23. GLYCOSAMINOGLYCANS [Concomitant]
     Active Substance: GLYCOSAMINOGLYCANS
     Indication: Dry skin
  24. Myser [Concomitant]
     Indication: Hand dermatitis
  25. BIO-THREE [Concomitant]
     Active Substance: HERBALS
     Indication: Product used for unknown indication
  26. ALOXI [Concomitant]
     Active Substance: PALONOSETRON HYDROCHLORIDE
     Indication: Product used for unknown indication
  27. Lopemin [Concomitant]
     Indication: Product used for unknown indication
     Route: 065
  28. DIPHENHYDRAMINE [Concomitant]
     Active Substance: DIPHENHYDRAMINE
     Indication: Product used for unknown indication
     Route: 065
  29. MIYA-BM [Concomitant]
     Active Substance: CLOSTRIDIUM BUTYRICUM SPORES STRAIN M-55
     Indication: Product used for unknown indication
     Route: 065
  30. PANTETHINE [Concomitant]
     Active Substance: PANTETHINE
     Indication: Product used for unknown indication
     Route: 065
  31. MAGNESIUM OXIDE [Concomitant]
     Active Substance: MAGNESIUM OXIDE
     Indication: Product used for unknown indication
     Route: 065
  32. LANSOPRAZOLE [Concomitant]
     Active Substance: LANSOPRAZOLE
     Indication: Product used for unknown indication
     Route: 065
  33. SULFAMETHOXAZOLE\TRIMETHOPRIM [Concomitant]
     Active Substance: SULFAMETHOXAZOLE\TRIMETHOPRIM
     Indication: Product used for unknown indication
     Route: 065
  34. RINDERON VG [Concomitant]
     Active Substance: BETAMETHASONE VALERATE\GENTAMICIN SULFATE
     Indication: Product used for unknown indication
     Route: 065
  35. BROTIZOLAM [Concomitant]
     Active Substance: BROTIZOLAM
     Indication: Insomnia
     Route: 065
  36. HERCEPTIN [Concomitant]
     Active Substance: TRASTUZUMAB
     Indication: Product used for unknown indication
     Route: 065
  37. SODIUM BICARBONATE [Concomitant]
     Active Substance: SODIUM BICARBONATE
     Indication: Product used for unknown indication
     Route: 065
  38. SOLDEM 3A [Concomitant]
     Active Substance: CARBOHYDRATES\POTASSIUM CHLORIDE\SODIUM CHLORIDE\SODIUM LACTATE
     Indication: Product used for unknown indication
     Route: 065
  39. PREDNISOLONE [Concomitant]
     Active Substance: PREDNISOLONE
     Indication: Product used for unknown indication

REACTIONS (1)
  - Pulmonary toxicity [Recovered/Resolved]

NARRATIVE: CASE EVENT DATE: 20190419
